FAERS Safety Report 5675591-3 (Version None)
Quarter: 2008Q1

REPORT INFORMATION
  Report Type: 
  Country: None (occurrence: None)
  Receive Date: 20080321
  Receipt Date: 20080317
  Transmission Date: 20080703
  Serious: Yes (Other)
  Sender: FDA-Public Use
  Company Number: US-ALLERGAN-0802903US

PATIENT
  Sex: Female

DRUGS (2)
  1. RESTASIS [Suspect]
     Indication: DRY EYE
     Dosage: 1 GTT, BID
     Route: 047
     Dates: start: 20080101
  2. ARTIFICIAL TEARS [Concomitant]
     Indication: DRY EYE
     Route: 047

REACTIONS (3)
  - CATARACT [None]
  - EYE IRRITATION [None]
  - VISION BLURRED [None]
